FAERS Safety Report 7125120-2 (Version None)
Quarter: 2010Q4

REPORT INFORMATION
  Report Type: 
  Country: None (occurrence: None)
  Receive Date: 20101129
  Receipt Date: 20101019
  Transmission Date: 20110411
  Serious: Yes (Other)
  Sender: FDA-Public Use
  Company Number: US-AMGEN-USACT2010001810

PATIENT
  Sex: Female
  Weight: 73.18 kg

DRUGS (3)
  1. PANITUMUMAB [Suspect]
     Indication: ADENOCARCINOMA PANCREAS
     Dosage: 6 MG/KG, Q2WK
     Route: 042
     Dates: start: 20090611
  2. FLUOROURACIL [Suspect]
     Dosage: UNK
     Dates: start: 20090611
  3. GEMCITABINE HCL [Suspect]
     Dosage: UNK UNK, QWK

REACTIONS (1)
  - WEIGHT DECREASED [None]
